FAERS Safety Report 4324846-3 (Version None)
Quarter: 2004Q1

REPORT INFORMATION
  Report Type: 
  Country: None (occurrence: None)
  Receive Date: 20040322
  Receipt Date: 20040305
  Transmission Date: 20041129
  Serious: Yes (Hospitalization)
  Sender: FDA-Public Use
  Company Number: DSA_24070_2004

PATIENT
  Age: 51 Year
  Sex: Female

DRUGS (6)
  1. LORAZEPAM [Suspect]
     Dosage: VAR DAILY PO
     Route: 048
     Dates: start: 20031217, end: 20040111
  2. AURORIX [Suspect]
     Dosage: 750 MG DAILY PO
     Route: 048
  3. AURORIX [Suspect]
     Dosage: 600 MG DAILY PO
     Route: 048
  4. DIPIPERON [Suspect]
     Dosage: 40 MG DAILY PO
     Route: 048
     Dates: start: 20040106
  5. ZYPREXA [Suspect]
     Dosage: 7.5 MG DAILY PO
     Route: 048
  6. ZYPREXA [Suspect]
     Dosage: 5 MG DAILY PO
     Route: 048

REACTIONS (7)
  - BLOOD PRESSURE DECREASED [None]
  - BLOOD PRESSURE IMMEASURABLE [None]
  - CIRCULATORY COLLAPSE [None]
  - DRUG INTERACTION [None]
  - HAEMORRHAGE [None]
  - HEAD INJURY [None]
  - LOSS OF CONSCIOUSNESS [None]
